FAERS Safety Report 9272240 (Version 1)
Quarter: 2013Q2

REPORT INFORMATION
  Report Type: Spontaneous
  Country: US (occurrence: US)
  Receive Date: 20130506
  Receipt Date: 20130506
  Transmission Date: 20140414
  Serious: No
  Sender: FDA-Public Use
  Company Number: US-ASTRAZENECA-2013SE10889

PATIENT
  Age: 63 Year
  Sex: Female

DRUGS (1)
  1. PRILOSEC OTC, WILDBERRY FLAVOR [Suspect]
     Route: 048

REACTIONS (2)
  - Onychalgia [Recovered/Resolved]
  - Product package associated injury [Recovered/Resolved]
